FAERS Safety Report 15729075 (Version 1)
Quarter: 2018Q4

REPORT INFORMATION
  Report Type: Spontaneous
  Country: IE (occurrence: GB)
  Receive Date: 20181217
  Receipt Date: 20181217
  Transmission Date: 20190205
  Serious: Yes (Death, Hospitalization)
  Sender: FDA-Public Use
  Company Number: GB-PFIZER INC-2008080395

PATIENT
  Sex: Female

DRUGS (3)
  1. METHOTREXATE SODIUM. [Interacting]
     Active Substance: METHOTREXATE SODIUM
     Dosage: 10 MG, 1X/DAY
     Route: 048
     Dates: start: 20000407
  2. IBUPROFEN. [Interacting]
     Active Substance: IBUPROFEN
     Dosage: UNK
     Dates: end: 20000421
  3. METHOTREXATE SODIUM. [Suspect]
     Active Substance: METHOTREXATE SODIUM
     Indication: RHEUMATOID ARTHRITIS
     Dosage: 10 MG, WEEKLY
     Route: 048
     Dates: start: 199701

REACTIONS (16)
  - Gastrointestinal haemorrhage [Fatal]
  - Rash [Unknown]
  - Intercepted product administration error [Fatal]
  - Phlebitis [Unknown]
  - Toxicity to various agents [Fatal]
  - Product dispensing error [Fatal]
  - Knee arthroplasty [Unknown]
  - Mucosal inflammation [Unknown]
  - Product prescribing error [Fatal]
  - Overdose [Fatal]
  - Pancytopenia [Fatal]
  - Inappropriate schedule of product administration [Fatal]
  - Arthralgia [Unknown]
  - Inflammation [Unknown]
  - Drug interaction [Fatal]
  - Condition aggravated [Unknown]

NARRATIVE: CASE EVENT DATE: 200001
